FAERS Safety Report 8159152-2 (Version None)
Quarter: 2012Q1

REPORT INFORMATION
  Report Type: 
  Country: None (occurrence: None)
  Receive Date: 20120223
  Receipt Date: 20120214
  Transmission Date: 20120608
  Serious: Yes (Hospitalization, Other)
  Sender: FDA-Public Use
  Company Number: BR-ABBOTT-12P-020-0904783-00

PATIENT
  Sex: Male
  Weight: 95 kg

DRUGS (2)
  1. HUMIRA [Suspect]
  2. HUMIRA [Suspect]
     Indication: RHEUMATOID ARTHRITIS
     Route: 058
     Dates: start: 20110601, end: 20120110

REACTIONS (6)
  - DYSURIA [None]
  - PROSTATIC DISORDER [None]
  - PROSTATOMEGALY [None]
  - URETHRAL OBSTRUCTION [None]
  - RHEUMATOID ARTHRITIS [None]
  - ARTHRALGIA [None]
